FAERS Safety Report 23527967 (Version 1)
Quarter: 2024Q1

REPORT INFORMATION
  Report Type: Spontaneous
  Country: US (occurrence: None)
  Receive Date: 20240213
  Receipt Date: 20240213
  Transmission Date: 20240410
  Serious: Yes (Hospitalization)
  Sender: FDA-Public Use
  Company Number: None

PATIENT
  Age: 48 Year
  Sex: Male
  Weight: 119.2 kg

DRUGS (2)
  1. TIANEPTINE [Suspect]
     Active Substance: TIANEPTINE
     Indication: Product used for unknown indication
     Dosage: 1 WEEK
  2. Neptune Fix [Concomitant]

REACTIONS (3)
  - Seizure [None]
  - Hypotension [None]
  - Cardiac disorder [None]

NARRATIVE: CASE EVENT DATE: 20240212
